FAERS Safety Report 6764002-2 (Version None)
Quarter: 2010Q2

REPORT INFORMATION
  Report Type: 
  Country: None (occurrence: None)
  Receive Date: 20100610
  Receipt Date: 20100528
  Transmission Date: 20101027
  Serious: Yes (Hospitalization)
  Sender: FDA-Public Use
  Company Number: FR-ELI_LILLY_AND_COMPANY-FR201002007277

PATIENT
  Age: 80 Year
  Sex: Female
  Weight: 60 kg

DRUGS (6)
  1. CYMBALTA [Suspect]
     Indication: DEPRESSION
     Route: 048
     Dates: start: 20091228, end: 20100212
  2. XANAX [Concomitant]
     Dosage: UNK, UNKNOWN
     Route: 048
  3. LEVOTHYROXINE SODIUM [Concomitant]
     Dosage: UNK, UNKNOWN
     Route: 048
  4. TANGANIL [Concomitant]
     Dosage: UNK, UNKNOWN
     Route: 048
  5. XALATAN [Concomitant]
     Dosage: UNK, UNKNOWN
     Route: 048
  6. FOSAVANCE [Concomitant]
     Dosage: UNK, UNKNOWN
     Route: 048

REACTIONS (1)
  - ISCHAEMIC STROKE [None]
